FAERS Safety Report 25599071 (Version 2)
Quarter: 2025Q3

REPORT INFORMATION
  Report Type: Report from Study
  Country: CN (occurrence: None)
  Receive Date: 20250724
  Receipt Date: 20250821
  Transmission Date: 20251020
  Serious: Yes (Hospitalization)
  Sender: JIANGSU HANSOH PHARMACEUTICAL GROUP CO., LTD.
  Company Number: CN-Hansoh-20252190013119

PATIENT
  Age: 37 Year
  Sex: Male
  Weight: 56 kg

DRUGS (4)
  1. PEMETREXED DISODIUM [Suspect]
     Active Substance: PEMETREXED DISODIUM
     Indication: Non-small cell lung cancer
     Dosage: 775 MG, Q3W
     Route: 041
     Dates: start: 20250530, end: 20250530
  2. ADEBRELIMAB [Suspect]
     Active Substance: ADEBRELIMAB
     Indication: Non-small cell lung cancer
     Dosage: 1200 MG, Q3W
     Route: 041
     Dates: start: 20250530, end: 20250530
  3. INVESTIGATIONAL PRODUCT [Suspect]
     Active Substance: INVESTIGATIONAL PRODUCT
     Indication: Non-small cell lung cancer
     Route: 041
     Dates: start: 20250530, end: 20250530
  4. CARBOPLATIN [Suspect]
     Active Substance: CARBOPLATIN
     Indication: Non-small cell lung cancer
     Dosage: 723 MG, EVERY 3 WEEKS
     Route: 041
     Dates: start: 20250530, end: 20250530

REACTIONS (2)
  - Bilirubin conjugated increased [Recovering/Resolving]
  - Bile acids increased [Not Recovered/Not Resolved]

NARRATIVE: CASE EVENT DATE: 20250705
